FAERS Safety Report 7059343-8 (Version None)
Quarter: 2010Q4

REPORT INFORMATION
  Report Type: 
  Country: None (occurrence: None)
  Receive Date: 20101025
  Receipt Date: 20101020
  Transmission Date: 20110411
  Serious: No
  Sender: FDA-Public Use
  Company Number: US-BIOGENIDEC-2010BI036174

PATIENT
  Age: 42 Year
  Sex: Female

DRUGS (5)
  1. AVONEX [Suspect]
     Indication: MULTIPLE SCLEROSIS
     Route: 030
     Dates: start: 20061001
  2. AVONEX [Suspect]
     Route: 030
  3. AVONEX [Suspect]
     Route: 030
  4. NEXIUM [Concomitant]
     Indication: GASTROOESOPHAGEAL REFLUX DISEASE
  5. NEXIUM [Concomitant]
     Indication: HIATUS HERNIA

REACTIONS (6)
  - BURNING SENSATION [None]
  - DERMATITIS BULLOUS [None]
  - INFLUENZA LIKE ILLNESS [None]
  - PRURITUS [None]
  - RASH [None]
  - RASH PAPULAR [None]
